FAERS Safety Report 4390517-0 (Version None)
Quarter: 2004Q2

REPORT INFORMATION
  Report Type: 
  Country: None (occurrence: None)
  Receive Date: 20040630
  Receipt Date: 20040615
  Transmission Date: 20050107
  Serious: Yes (Hospitalization)
  Sender: FDA-Public Use
  Company Number: 195783

PATIENT
  Sex: Female

DRUGS (3)
  1. AVONEX [Suspect]
     Indication: MULTIPLE SCLEROSIS
     Dosage: 30 MCG QW IM
     Route: 030
     Dates: start: 20030311
  2. VIOXX [Concomitant]
  3. SOLU-MEDROL [Concomitant]

REACTIONS (2)
  - HAEMORRHAGIC OVARIAN CYST [None]
  - OPTIC NEURITIS [None]
